FAERS Safety Report 9837110 (Version 1)
Quarter: 2014Q1

REPORT INFORMATION
  Report Type: Spontaneous
  Country: AT (occurrence: AT)
  Receive Date: 20140123
  Receipt Date: 20140123
  Transmission Date: 20141002
  Serious: Yes (Other)
  Sender: FDA-Public Use
  Company Number: AT-JNJFOC-20140107986

PATIENT
  Sex: 0

DRUGS (2)
  1. CAELYX (DOXORUBICIN HYDROCHLORIDE) [Suspect]
     Indication: HER-2 POSITIVE BREAST CANCER
     Route: 042
  2. LAPATINIB [Suspect]
     Indication: HER-2 POSITIVE BREAST CANCER
     Route: 048

REACTIONS (1)
  - Metastases to central nervous system [Unknown]
